FAERS Safety Report 10012696 (Version 1)
Quarter: 2014Q1

REPORT INFORMATION
  Report Type: Spontaneous
  Country: FR (occurrence: FR)
  Receive Date: 20140314
  Receipt Date: 20140314
  Transmission Date: 20141002
  Serious: Yes (Hospitalization)
  Sender: FDA-Public Use
  Company Number: FR-PFIZER INC-2014067580

PATIENT
  Age: 37 Year
  Sex: Male

DRUGS (4)
  1. TRIFLUCAN [Suspect]
     Dosage: UNK
     Dates: start: 20131206, end: 20140103
  2. TAZOCILLINE [Suspect]
     Dosage: UNK
     Route: 042
     Dates: start: 20131210, end: 20131219
  3. TAZOCILLINE [Suspect]
     Dosage: UNK
     Route: 042
     Dates: start: 20131223, end: 20140104
  4. FLAGYL ^AVENTIS^ [Suspect]
     Dosage: UNK
     Dates: start: 20131210, end: 20140103

REACTIONS (4)
  - Renal failure acute [Recovered/Resolved]
  - Histiocytosis haematophagic [Recovered/Resolved]
  - Aspartate aminotransferase increased [Recovered/Resolved]
  - Blood alkaline phosphatase increased [Recovered/Resolved]
